FAERS Safety Report 9721583 (Version 1)
Quarter: 2013Q4

REPORT INFORMATION
  Report Type: Spontaneous
  Country: BR (occurrence: BR)
  Receive Date: 20131201
  Receipt Date: 20131201
  Transmission Date: 20140711
  Serious: Yes (Death, Life-Threatening)
  Sender: FDA-Public Use
  Company Number: BR-009507513-1311BRA012517

PATIENT
  Age: 1 Day
  Sex: Female

DRUGS (1)
  1. MERCILON [Suspect]
     Indication: CONTRACEPTION
     Dosage: 150/20 MICROGRAM, QD
     Route: 064
     Dates: start: 2000

REACTIONS (4)
  - Death [Fatal]
  - Neonatal hypoxia [Recovered/Resolved]
  - Umbilical cord around neck [Recovered/Resolved]
  - Foetal exposure during pregnancy [Unknown]
